FAERS Safety Report 18898625 (Version 1)
Quarter: 2021Q1

REPORT INFORMATION
  Report Type: Spontaneous
  Country: US (occurrence: US)
  Receive Date: 20210216
  Receipt Date: 20210216
  Transmission Date: 20210420
  Serious: No
  Sender: FDA-Public Use
  Company Number: US-SA-2021SA048580

PATIENT
  Age: 49 Year
  Sex: Female

DRUGS (9)
  1. KEVZARA [Suspect]
     Active Substance: SARILUMAB
     Indication: RHEUMATOID ARTHRITIS
     Dosage: 200 MG, QOW
     Route: 058
     Dates: start: 20200722
  2. BOTOX [Concomitant]
     Active Substance: ONABOTULINUMTOXINA
  3. COSENTYX [Concomitant]
     Active Substance: SECUKINUMAB
  4. MAGNESIUM [Concomitant]
     Active Substance: MAGNESIUM
  5. ADVIL [Concomitant]
     Active Substance: IBUPROFEN
  6. VITAMIN D3 [Concomitant]
     Active Substance: CHOLECALCIFEROL
  7. VITAMIN B12 [VITAMIN B12 NOS] [Concomitant]
     Active Substance: CYANOCOBALAMIN
  8. ALEVE [Concomitant]
     Active Substance: NAPROXEN SODIUM
  9. ZYRTEC [Concomitant]
     Active Substance: CETIRIZINE HYDROCHLORIDE

REACTIONS (1)
  - COVID-19 [Unknown]

NARRATIVE: CASE EVENT DATE: 202101
